FAERS Safety Report 7012303-5 (Version None)
Quarter: 2010Q3

REPORT INFORMATION
  Report Type: 
  Country: None (occurrence: None)
  Receive Date: 20100924
  Receipt Date: 20100915
  Transmission Date: 20110219
  Serious: Yes (Hospitalization)
  Sender: FDA-Public Use
  Company Number: US-ASTRAZENECA-2010SE29002

PATIENT
  Age: 58 Year
  Sex: Female
  Weight: 59 kg

DRUGS (16)
  1. SEROQUEL [Suspect]
     Indication: BIPOLAR DISORDER
     Route: 048
     Dates: start: 20091112, end: 20091118
  2. SEROQUEL [Suspect]
     Indication: DEPRESSION
     Route: 048
     Dates: start: 20091112, end: 20091118
  3. SEROQUEL [Suspect]
     Route: 048
  4. SEROQUEL [Suspect]
     Route: 048
  5. SEROQUEL [Suspect]
     Route: 048
  6. SEROQUEL [Suspect]
     Route: 048
  7. HYZAAR [Concomitant]
  8. ALPRAZOLAM [Concomitant]
  9. MAXALT [Concomitant]
  10. NADOLOL [Concomitant]
  11. FLUOXETINE [Concomitant]
  12. OXYCOD APAP [Concomitant]
  13. BUPROPION HCL [Concomitant]
     Dates: start: 20091021, end: 20091109
  14. TOPAMAX [Concomitant]
     Indication: MIGRAINE
     Dates: start: 20091108
  15. ATIVAN [Concomitant]
     Indication: DEPRESSION
     Dates: start: 20091108
  16. CLONAZEPAM [Concomitant]
     Indication: ANXIETY
     Dates: start: 20090929, end: 20091124

REACTIONS (11)
  - ABASIA [None]
  - ACTIVITIES OF DAILY LIVING IMPAIRED [None]
  - DYSARTHRIA [None]
  - HYPERTENSION [None]
  - INSOMNIA [None]
  - LIVER FUNCTION TEST ABNORMAL [None]
  - LOSS OF CONSCIOUSNESS [None]
  - MEMORY IMPAIRMENT [None]
  - RENAL FAILURE ACUTE [None]
  - RHABDOMYOLYSIS [None]
  - WEIGHT DECREASED [None]
